FAERS Safety Report 4331284-6 (Version None)
Quarter: 2004Q1

REPORT INFORMATION
  Report Type: 
  Country: None (occurrence: None)
  Receive Date: 20040329
  Receipt Date: 20040318
  Transmission Date: 20041129
  Serious: Yes (Hospitalization, Other)
  Sender: FDA-Public Use
  Company Number: HQWYE990119MAR04

PATIENT
  Age: 68 Year
  Sex: Male

DRUGS (2)
  1. LEUCOVORIN CALCIUM [Suspect]
     Dates: start: 20040101
  2. FLUOROURACIL [Suspect]
     Dates: start: 20040101

REACTIONS (8)
  - COLITIS [None]
  - DECREASED APPETITE [None]
  - DEHYDRATION [None]
  - DIVERTICULUM INTESTINAL [None]
  - GASTROOESOPHAGEAL REFLUX DISEASE [None]
  - PYREXIA [None]
  - SINUS TACHYCARDIA [None]
  - URINARY TRACT INFECTION [None]
